FAERS Safety Report 7450647-3 (Version None)
Quarter: 2011Q2

REPORT INFORMATION
  Report Type: 
  Country: None (occurrence: None)
  Receive Date: 20110502
  Receipt Date: 20110420
  Transmission Date: 20111010
  Serious: Yes (Other)
  Sender: FDA-Public Use
  Company Number: FR-SANOFI-AVENTIS-2011SA024665

PATIENT
  Age: 88 Year
  Sex: Female

DRUGS (5)
  1. COVERSYL /FRA/ [Suspect]
     Route: 048
     Dates: start: 20110101, end: 20110205
  2. MULTAQ [Suspect]
     Indication: ATRIAL FIBRILLATION
     Route: 048
     Dates: start: 20110106, end: 20110205
  3. CORDARONE [Concomitant]
     Route: 048
     Dates: start: 20110206
  4. CORDARONE [Concomitant]
     Indication: ATRIAL FIBRILLATION
     Route: 048
     Dates: start: 20101201, end: 20110104
  5. PREVISCAN [Concomitant]
     Route: 048

REACTIONS (2)
  - CYTOLYTIC HEPATITIS [None]
  - CHOLESTASIS [None]
